FAERS Safety Report 9401762 (Version 1)
Quarter: 2013Q3

REPORT INFORMATION
  Report Type: Spontaneous
  Country: US (occurrence: US)
  Receive Date: 20130716
  Receipt Date: 20130716
  Transmission Date: 20140515
  Serious: No
  Sender: FDA-Public Use
  Company Number: US-BIOGENIDEC-2013BI064080

PATIENT
  Sex: Female

DRUGS (1)
  1. TYSABRI [Suspect]
     Indication: MULTIPLE SCLEROSIS
     Route: 042
     Dates: start: 20070912

REACTIONS (4)
  - Benign breast neoplasm [Recovered/Resolved]
  - Arthropod bite [Recovered/Resolved]
  - Memory impairment [Not Recovered/Not Resolved]
  - Scab [Unknown]
